FAERS Safety Report 8462496-8 (Version None)
Quarter: 2012Q2

REPORT INFORMATION
  Report Type: 
  Country: None (occurrence: None)
  Receive Date: 20120625
  Receipt Date: 20120611
  Transmission Date: 20120825
  Serious: Yes (Other)
  Sender: FDA-Public Use
  Company Number: IT-MYLANLABS-2012S1012020

PATIENT
  Age: 72 Year
  Sex: Female

DRUGS (1)
  1. PACLITAXEL [Suspect]
     Indication: BREAST CANCER FEMALE
     Route: 042
     Dates: start: 20120611, end: 20120611

REACTIONS (5)
  - FLUSHING [None]
  - BRONCHOSPASM [None]
  - HYPERHIDROSIS [None]
  - CHEST PAIN [None]
  - COUGH [None]
